FAERS Safety Report 5158247-5 (Version None)
Quarter: 2006Q4

REPORT INFORMATION
  Report Type: 
  Country: None (occurrence: None)
  Receive Date: 20061121
  Receipt Date: 20061121
  Transmission Date: 20070319
  Serious: Yes (Disabling, Other)
  Sender: FDA-Public Use
  Company Number: None

PATIENT
  Age: 72 Year
  Sex: Female
  Weight: 74.3899 kg

DRUGS (2)
  1. SPIRIVA [Suspect]
     Indication: CHRONIC OBSTRUCTIVE PULMONARY DISEASE
     Dosage: 18 MCG DAILY INHALATION (LESS THAN 2 MONTHS)
     Route: 055
  2. LOPRESSOR [Concomitant]

REACTIONS (6)
  - BLINDNESS UNILATERAL [None]
  - DRY EYE [None]
  - EYE IRRITATION [None]
  - MACULAR DEGENERATION [None]
  - VISION BLURRED [None]
  - WRONG TECHNIQUE IN DRUG USAGE PROCESS [None]
